FAERS Safety Report 24351102 (Version 1)
Quarter: 2024Q3

REPORT INFORMATION
  Report Type: Report from Study
  Country: PT (occurrence: PT)
  Receive Date: 20240923
  Receipt Date: 20240923
  Transmission Date: 20241016
  Serious: No
  Sender: ROCHE
  Company Number: PT-ROCHE-2315385

PATIENT
  Age: 50 Year
  Sex: Female
  Weight: 69.0 kg

DRUGS (7)
  1. HERCEPTIN [Suspect]
     Active Substance: TRASTUZUMAB
     Indication: HER2 positive breast cancer
     Dosage: MOST RECENT DOSE RECEIVED ON 21/MAR/2019
     Route: 042
     Dates: start: 20180802, end: 20180802
  2. KADCYLA [Suspect]
     Active Substance: ADO-TRASTUZUMAB EMTANSINE
     Indication: HER2 positive breast cancer
     Dosage: ON 06/NOV/2020, SHE RECEIVED MOST RECENT DOSE OF IV TRASTUZUMAB EMTANSINE.
     Route: 042
     Dates: start: 20190905
  3. PERJETA [Suspect]
     Active Substance: PERTUZUMAB
     Indication: HER2 positive breast cancer
     Dosage: MOST RECENT DOSE RECEIVED ON 21/MAR/2019
     Route: 042
     Dates: start: 20180802
  4. XELODA [Suspect]
     Active Substance: CAPECITABINE
     Indication: HER2 positive breast cancer
     Dosage: SHE RECEIVED MOST RECENT DOSE OF ORAL CAPECITABINE ON 10/MAY/2019
     Route: 048
     Dates: start: 20190510, end: 20190808
  5. ARIMIDEX [Suspect]
     Active Substance: ANASTROZOLE
     Indication: HER2 positive breast cancer
     Dosage: MOST RECENT DOSE RECEIVED ON 31/JAN/2019
     Route: 048
     Dates: start: 20180720
  6. TAXOTERE [Suspect]
     Active Substance: DOCETAXEL
     Indication: HER2 positive breast cancer
     Dosage: MOST RECENT DOSE RECEIVED ON 17/JAN/2019
     Route: 042
     Dates: start: 20180802
  7. TYKERB [Suspect]
     Active Substance: LAPATINIB DITOSYLATE
     Indication: HER2 positive breast cancer
     Dosage: ON 08/AUG/2019, SHE RECEIVED MOST RECENT DOSE OF ORAL LAPATINIB.
     Route: 048
     Dates: start: 20190510

REACTIONS (2)
  - Ejection fraction decreased [Recovered/Resolved]
  - Ejection fraction decreased [Recovered/Resolved]

NARRATIVE: CASE EVENT DATE: 20190326
